FAERS Safety Report 7820646-8 (Version None)
Quarter: 2011Q4

REPORT INFORMATION
  Report Type: 
  Country: None (occurrence: None)
  Receive Date: 20111018
  Receipt Date: 20111011
  Transmission Date: 20120403
  Serious: Yes (Disabling)
  Sender: FDA-Public Use
  Company Number: DE-ABBOTT-11P-062-0863578-00

PATIENT
  Age: 38 Year
  Sex: Female

DRUGS (8)
  1. TEBONIN [Concomitant]
     Indication: PRODUCT USED FOR UNKNOWN INDICATION
     Dates: start: 20110101, end: 20110714
  2. KEPPRA [Concomitant]
     Indication: PRODUCT USED FOR UNKNOWN INDICATION
     Dates: start: 20110101
  3. MIRTAZAPINE [Concomitant]
     Indication: PRODUCT USED FOR UNKNOWN INDICATION
  4. FRISIUM [Concomitant]
     Indication: PRODUCT USED FOR UNKNOWN INDICATION
     Dates: start: 20110701
  5. LORAZEPAM [Concomitant]
     Indication: PRODUCT USED FOR UNKNOWN INDICATION
     Dates: end: 20110801
  6. ANTIEPILEPTICS [Concomitant]
     Indication: PRODUCT USED FOR UNKNOWN INDICATION
     Dates: start: 20110101, end: 20110714
  7. VALPROATE SODIUM [Suspect]
     Indication: EPILEPSY
     Dosage: DAILY DOSE: 500MG
     Route: 048
     Dates: start: 20110101, end: 20110814
  8. VALPROATE SODIUM [Suspect]
     Route: 048
     Dates: start: 20110815

REACTIONS (5)
  - TREMOR [None]
  - MENORRHAGIA [None]
  - FEELING COLD [None]
  - DECREASED APPETITE [None]
  - GAIT DISTURBANCE [None]
